FAERS Safety Report 16355033 (Version 1)
Quarter: 2019Q2

REPORT INFORMATION
  Report Type: Spontaneous
  Country: DE (occurrence: DE)
  Receive Date: 20190524
  Receipt Date: 20190524
  Transmission Date: 20190711
  Serious: Yes (Hospitalization, Other)
  Sender: FDA-Public Use
  Company Number: DE-JAZZ-2019-DE-007204

PATIENT
  Sex: Female

DRUGS (1)
  1. VYXEOS [Suspect]
     Active Substance: CYTARABINE\DAUNORUBICIN
     Indication: ACUTE MYELOID LEUKAEMIA
     Dosage: 44/100MG/M2, DAYS 1,3,5
     Dates: start: 20180831

REACTIONS (10)
  - Pancytopenia [Not Recovered/Not Resolved]
  - Neutropenia [Unknown]
  - Pneumonia [Unknown]
  - Cytomegalovirus infection [Recovered/Resolved]
  - Febrile neutropenia [Unknown]
  - Pyrexia [Unknown]
  - Decreased appetite [Unknown]
  - Disease progression [Unknown]
  - General physical health deterioration [Unknown]
  - Graft versus host disease in skin [Unknown]

NARRATIVE: CASE EVENT DATE: 20180921
